FAERS Safety Report 23243234 (Version 2)
Quarter: 2023Q4

REPORT INFORMATION
  Report Type: Report from Study
  Country: US (occurrence: US)
  Receive Date: 20231130
  Receipt Date: 20231215
  Transmission Date: 20240110
  Serious: Yes (Other)
  Sender: FDA-Public Use
  Company Number: US-ALXN-A202310622AA

PATIENT
  Age: 67 Year
  Sex: Male

DRUGS (3)
  1. SOLIRIS [Suspect]
     Active Substance: ECULIZUMAB
     Indication: Myasthenia gravis
     Dosage: UNK
     Route: 065
  2. ULTOMIRIS [Suspect]
     Active Substance: RAVULIZUMAB-CWVZ
     Indication: Myasthenia gravis
     Dosage: UNK
     Route: 042
  3. IRON [Concomitant]
     Active Substance: IRON
     Indication: Gastric haemorrhage
     Dosage: UNK
     Route: 065
     Dates: start: 202311

REACTIONS (7)
  - Heart rate increased [Unknown]
  - Anaemia [Unknown]
  - Cardiac operation [Unknown]
  - Hiccups [Unknown]
  - Drug ineffective [Unknown]
  - Cough [Not Recovered/Not Resolved]
  - Arthralgia [Unknown]

NARRATIVE: CASE EVENT DATE: 20230813
